FAERS Safety Report 9758556 (Version 3)
Quarter: 2014Q1

REPORT INFORMATION
  Report Type: Spontaneous
  Country: US (occurrence: US)
  Receive Date: 20131216
  Receipt Date: 20140101
  Transmission Date: 20141002
  Serious: Yes (Other)
  Sender: FDA-Public Use
  Company Number: US-AMGEN-USASP2013081505

PATIENT
  Age: 77 Year
  Sex: Female
  Weight: 53.06 kg

DRUGS (5)
  1. PROLIA [Suspect]
     Indication: OSTEOPOROSIS POSTMENOPAUSAL
     Dosage: 60 MG, Q6MO
     Route: 058
     Dates: start: 201304, end: 201305
  2. PRAVASTATIN [Concomitant]
     Dosage: 40 MG, QD
     Route: 048
  3. OMEPRAZOLE [Concomitant]
     Dosage: 20 MG, BID
     Route: 048
  4. RAMIPRIL [Concomitant]
     Dosage: 5 MG, BID
     Route: 048
  5. RANITIDINE [Concomitant]
     Dosage: 150 MG, QID
     Route: 048

REACTIONS (2)
  - Bone lesion [Recovering/Resolving]
  - Stomatitis [Recovering/Resolving]
